FAERS Safety Report 4682025-4 (Version None)
Quarter: 2005Q2

REPORT INFORMATION
  Report Type: 
  Country: None (occurrence: None)
  Receive Date: 20050606
  Receipt Date: 20050525
  Transmission Date: 20051028
  Serious: Yes (Hospitalization)
  Sender: FDA-Public Use
  Company Number: US-JNJFOC-20050106228

PATIENT
  Sex: Female
  Weight: 83.01 kg

DRUGS (11)
  1. REMICADE [Suspect]
     Indication: RHEUMATOID ARTHRITIS
     Route: 042
  2. PREDNISONE [Concomitant]
     Indication: RHEUMATOID ARTHRITIS
  3. IBUPROFEN [Concomitant]
     Indication: RHEUMATOID ARTHRITIS
  4. TOLECTIN [Concomitant]
  5. AMITRIPTYLINE [Concomitant]
  6. FIORINAL [Concomitant]
  7. FIORINAL [Concomitant]
  8. FIORINAL [Concomitant]
  9. NIFEDIPINE [Concomitant]
  10. FUROSEMIDE [Concomitant]
  11. TYLENOL PM [Concomitant]

REACTIONS (8)
  - ALOPECIA [None]
  - ARTERIAL INSUFFICIENCY [None]
  - ASTHENIA [None]
  - CYANOSIS [None]
  - OEDEMA PERIPHERAL [None]
  - PAIN IN EXTREMITY [None]
  - RASH [None]
  - RASH MACULAR [None]
